FAERS Safety Report 5513155-2 (Version None)
Quarter: 2007Q4

REPORT INFORMATION
  Report Type: 
  Country: None (occurrence: None)
  Receive Date: 20071112
  Receipt Date: 20070614
  Transmission Date: 20080405
  Serious: Yes (Other)
  Sender: FDA-Public Use
  Company Number: US-BRISTOL-MYERS SQUIBB COMPANY-13642046

PATIENT
  Age: 49 Year
  Sex: Male
  Weight: 54 kg

DRUGS (7)
  1. SUSTIVA [Suspect]
     Indication: HIV INFECTION
     Route: 048
     Dates: start: 20061207, end: 20061218
  2. ATRIPLA [Concomitant]
     Dates: start: 20060919, end: 20061101
  3. BACTRIM [Concomitant]
  4. CIPRO [Concomitant]
     Indication: URINARY TRACT INFECTION
  5. ZITHROMAX [Concomitant]
  6. TRAZODONE HCL [Concomitant]
  7. VITAMINS [Concomitant]

REACTIONS (4)
  - EXFOLIATIVE RASH [None]
  - HEADACHE [None]
  - TOOTH EXTRACTION [None]
  - URINARY TRACT INFECTION [None]
